FAERS Safety Report 24832311 (Version 1)
Quarter: 2025Q1

REPORT INFORMATION
  Report Type: Spontaneous
  Country: SE (occurrence: IT)
  Receive Date: 20250110
  Receipt Date: 20250110
  Transmission Date: 20250409
  Serious: Yes (Disabling, Other)
  Sender: TEVA
  Company Number: IT-TEVA-VS-3282210

PATIENT
  Age: 55 Year
  Sex: Female
  Weight: 65 kg

DRUGS (14)
  1. ETORICOXIB [Suspect]
     Active Substance: ETORICOXIB
     Indication: Rheumatoid arthritis
     Route: 065
  2. AMLODIPINE [Suspect]
     Active Substance: AMLODIPINE BESYLATE
     Indication: Blood pressure measurement
     Route: 065
  3. ACETAMINOPHEN [Suspect]
     Active Substance: ACETAMINOPHEN
     Indication: Rheumatoid arthritis
     Route: 065
  4. ZOLPIDEM TARTRATE [Suspect]
     Active Substance: ZOLPIDEM TARTRATE
     Indication: Insomnia
     Route: 065
  5. CALCIUM CARBONATE\CHOLECALCIFEROL [Suspect]
     Active Substance: CALCIUM CARBONATE\CHOLECALCIFEROL
     Indication: Rheumatoid arthritis
     Route: 065
  6. ALENDRONATE [Suspect]
     Active Substance: ALENDRONATE SODIUM
     Indication: Foot fracture
     Dosage: DOSAGE TEXT: 70 MILLIGRAM, EVERY WEEK
     Route: 065
     Dates: start: 201902, end: 202006
  7. OLUMIANT [Suspect]
     Active Substance: BARICITINIB
     Indication: Rheumatoid arthritis
     Route: 065
  8. FIASP [Suspect]
     Active Substance: INSULIN ASPART
     Indication: Type 1 diabetes mellitus
     Route: 065
  9. ZOLEDRONIC ACID [Suspect]
     Active Substance: ZOLEDRONIC ACID
     Indication: Insomnia
     Route: 065
  10. PRASTERONE [Suspect]
     Active Substance: PRASTERONE
     Indication: Blood testosterone decreased
     Route: 065
  11. ESTRADERM [Suspect]
     Active Substance: ESTRADIOL
     Indication: Oestrogen deficiency
     Route: 065
  12. RHINOCORT [Suspect]
     Active Substance: BUDESONIDE
     Indication: Product used for unknown indication
     Route: 065
  13. TRAMADOL [Suspect]
     Active Substance: TRAMADOL
     Indication: Rheumatoid arthritis
     Route: 065
  14. ATARAX [Suspect]
     Active Substance: HYDROXYZINE HYDROCHLORIDE
     Indication: Insomnia
     Route: 065

REACTIONS (10)
  - Femur fracture [Recovering/Resolving]
  - Hypoacusis [Recovering/Resolving]
  - Fatigue [Recovering/Resolving]
  - Lower limb fracture [Recovering/Resolving]
  - Swelling [Recovering/Resolving]
  - Deafness [Recovering/Resolving]
  - Balance disorder [Recovering/Resolving]
  - Walking aid user [Recovering/Resolving]
  - Gait disturbance [Recovering/Resolving]
  - Pain in extremity [Recovering/Resolving]

NARRATIVE: CASE EVENT DATE: 20190801
